FAERS Safety Report 6647756-5 (Version None)
Quarter: 2010Q1

REPORT INFORMATION
  Report Type: 
  Country: None (occurrence: None)
  Receive Date: 20100324
  Receipt Date: 20100315
  Transmission Date: 20100710
  Serious: Yes (Other)
  Sender: FDA-Public Use
  Company Number: JP-ABBOTT-10P-087-0632237-00

PATIENT
  Age: 74 Year
  Sex: Female

DRUGS (6)
  1. FENOFIBRATE [Suspect]
     Indication: DYSLIPIDAEMIA
     Dosage: 100MG DAILY
     Route: 048
     Dates: start: 20091225, end: 20100125
  2. CANDESARTAN CILEXETIL [Concomitant]
     Indication: DRUG USE FOR UNKNOWN INDICATION
     Dates: start: 20091225
  3. BENIDIPINE HYDROCHLORIDE [Concomitant]
     Indication: DRUG USE FOR UNKNOWN INDICATION
     Dates: start: 20100125
  4. CEFDINIR [Concomitant]
     Indication: DRUG USE FOR UNKNOWN INDICATION
     Dates: start: 20100108, end: 20100113
  5. NON-PYRINE COLD PREPARATION [Concomitant]
     Indication: DRUG USE FOR UNKNOWN INDICATION
     Dates: start: 20100108, end: 20100113
  6. IBUPROFEN [Concomitant]
     Indication: DRUG USE FOR UNKNOWN INDICATION
     Dates: start: 20100108, end: 20100113

REACTIONS (1)
  - HEPATIC FUNCTION ABNORMAL [None]
